FAERS Safety Report 10672760 (Version 2)
Quarter: 2015Q1

REPORT INFORMATION
  Report Type: Spontaneous
  Country: FR (occurrence: FR)
  Receive Date: 20141223
  Receipt Date: 20150114
  Transmission Date: 20150720
  Serious: Yes (Death)
  Sender: FDA-Public Use
  Company Number: FR-009507513-1412FRA010061

PATIENT
  Age: 53 Year
  Sex: Male
  Weight: 118 kg

DRUGS (5)
  1. NOVO-NORM [Concomitant]
     Active Substance: REPAGLINIDE
  2. STAGID [Concomitant]
     Active Substance: METFORMIN PAMOATE
     Indication: DIABETES MELLITUS
     Dosage: UNK (TOTAL DAILY DOSE: 1 DF)
     Dates: end: 20141218
  3. INEGY [Suspect]
     Active Substance: EZETIMIBE\SIMVASTATIN
     Indication: HYPERCHOLESTEROLAEMIA
     Route: 048
  4. EUCREAS [Concomitant]
     Active Substance: METFORMIN HYDROCHLORIDE\VILDAGLIPTIN
     Indication: DIABETES MELLITUS
     Dosage: UNK (TOTAL DAILY DOSE: 2 DF)
     Dates: end: 20141218
  5. COVERSYL (PERINDOPRIL ARGININE) [Concomitant]
     Active Substance: PERINDOPRIL

REACTIONS (1)
  - Sudden death [Fatal]

NARRATIVE: CASE EVENT DATE: 20141218
